FAERS Safety Report 11993201 (Version 1)
Quarter: 2016Q1

REPORT INFORMATION
  Report Type: Other
  Country: US (occurrence: US)
  Receive Date: 20160203
  Receipt Date: 20160203
  Transmission Date: 20160526
  Serious: Yes (Hospitalization)
  Sender: FDA-Public Use
  Company Number: US-LUPIN PHARMACEUTICALS INC.-2016-00363

PATIENT
  Age: 21 Year
  Sex: Female

DRUGS (2)
  1. NORETHINDRONE ACETATE 1 MG AND ETHINYL ESTRADIOL 20 MCG TABLETS [Suspect]
     Active Substance: ETHINYL ESTRADIOL\NORETHINDRONE ACETATE
     Indication: ORAL CONTRACEPTION
     Route: 065
  2. ETONOGESTREL 0.120 MG AND ETHINYL ESTRADIOL 0.015 MG [Suspect]
     Active Substance: ETHINYL ESTRADIOL\ETONOGESTREL
     Indication: ORAL CONTRACEPTION
     Route: 065

REACTIONS (3)
  - Pleural effusion [None]
  - Pulmonary infarction [None]
  - Pulmonary embolism [Recovered/Resolved]
